FAERS Safety Report 8520503-8 (Version None)
Quarter: 2012Q3

REPORT INFORMATION
  Report Type: 
  Country: None (occurrence: None)
  Receive Date: 20120719
  Receipt Date: 20120713
  Transmission Date: 20120928
  Serious: Yes (Hospitalization)
  Sender: FDA-Public Use
  Company Number: ZA-SANOFI-AVENTIS-2012SA049934

PATIENT
  Age: 55 Year
  Sex: Male

DRUGS (5)
  1. LANTUS [Suspect]
     Indication: TYPE 2 DIABETES MELLITUS
     Route: 058
     Dates: start: 20120301
  2. METFORMIN HYDROCHLORIDE [Concomitant]
     Route: 048
     Dates: start: 20020101
  3. PERINDOPRIL ERBUMINE [Concomitant]
     Indication: HYPERTENSION
     Route: 048
     Dates: start: 20020101
  4. LOSARTAN POTASSIUM [Concomitant]
     Indication: HYPERTENSION
     Route: 048
     Dates: start: 20020101
  5. SOLOSTAR [Suspect]
     Indication: DEVICE THERAPY
     Dates: start: 20120301

REACTIONS (1)
  - RETINAL DETACHMENT [None]
